APPROVED DRUG PRODUCT: ZEJULA
Active Ingredient: NIRAPARIB TOSYLATE
Strength: EQ 100MG BASE
Dosage Form/Route: CAPSULE;ORAL
Application: N208447 | Product #001
Applicant: GLAXOSMITHKLINE LLC
Approved: Mar 27, 2017 | RLD: Yes | RS: No | Type: DISCN

PATENTS:
Patent 8071579 | Expires: Aug 12, 2027
Patent 8859562 | Expires: Aug 4, 2031
Patent 8143241 | Expires: Aug 12, 2027
Patent 11673877 | Expires: Mar 27, 2038
Patent 11673877 | Expires: Mar 27, 2038
Patent 11091459 | Expires: Mar 27, 2038
Patent 8436185 | Expires: Apr 24, 2029
Patent 8071623 | Expires: Mar 27, 2031

EXCLUSIVITY:
Code: ODE-277 | Date: Oct 23, 2026
Code: ODE-295 | Date: Apr 29, 2027